FAERS Safety Report 7611723-5 (Version None)
Quarter: 2011Q3

REPORT INFORMATION
  Report Type: 
  Country: None (occurrence: None)
  Receive Date: 20110715
  Receipt Date: 20110711
  Transmission Date: 20111222
  Serious: Yes (Hospitalization)
  Sender: FDA-Public Use
  Company Number: US-B.I. PHARMACEUTICALS,INC./RIDGEFIELD-2011-BP-08055BP

PATIENT
  Age: 53 Year
  Sex: Female

DRUGS (11)
  1. BENICAR HCT [Concomitant]
  2. PRADAXA [Suspect]
     Indication: ATRIAL FIBRILLATION
     Dosage: 300 MG
     Route: 048
     Dates: start: 20101201
  3. PRADAXA [Suspect]
     Indication: CORONARY ARTERY BYPASS
  4. PLAVIX [Concomitant]
  5. AMIODARONE HCL [Concomitant]
  6. SIMCOR [Concomitant]
  7. ASPIRIN [Concomitant]
  8. XANAX [Concomitant]
  9. METFORMIN HCL [Concomitant]
  10. TOPROL-XL [Concomitant]
  11. ZOLOFT [Concomitant]

REACTIONS (4)
  - BURN OESOPHAGEAL [None]
  - SENSATION OF FOREIGN BODY [None]
  - CORONARY ARTERIAL STENT INSERTION [None]
  - DYSPEPSIA [None]
